FAERS Safety Report 15414502 (Version 1)
Quarter: 2018Q3

REPORT INFORMATION
  Report Type: Report from Study
  Country: US (occurrence: US)
  Receive Date: 20180921
  Receipt Date: 20180921
  Transmission Date: 20181010
  Serious: Yes (Hospitalization)
  Sender: FDA-Public Use
  Company Number: US-ASTRAZENECA-2018SF00125

PATIENT
  Age: 22584 Day
  Sex: Female
  Weight: 64.4 kg

DRUGS (15)
  1. MEDI4736 [Suspect]
     Active Substance: DURVALUMAB
     Indication: BREAST CANCER
     Dosage: EVERY TWO WEEKS
     Route: 042
     Dates: start: 20180727
  2. OXYCODONE [Concomitant]
     Active Substance: OXYCODONE
  3. TRIAMETERENE?HYDROCHOROTHIAZIDE [Concomitant]
     Dosage: 37.5?25 MG DAILY
     Route: 048
  4. MVI [Concomitant]
     Active Substance: VITAMINS
  5. COLCHICINE. [Concomitant]
     Active Substance: COLCHICINE
     Indication: GOUT
     Dosage: 2 TAB ONCE
     Route: 048
  6. POTASSIUM CHLORIDE. [Concomitant]
     Active Substance: POTASSIUM CHLORIDE
  7. SENNA [Concomitant]
     Active Substance: SENNA LEAF\SENNOSIDES\SENNOSIDES A AND B
     Dosage: 1 TAB AS REQUIRED
     Route: 048
  8. ABRAXANE [Suspect]
     Active Substance: PACLITAXEL
     Indication: BREAST CANCER
     Dosage: EVERY WEEK
     Route: 042
     Dates: start: 20180727, end: 20180806
  9. METFORMIN [Concomitant]
     Active Substance: METFORMIN HYDROCHLORIDE
  10. CRESTOR [Concomitant]
     Active Substance: ROSUVASTATIN CALCIUM
  11. INDOMETHACIN. [Concomitant]
     Active Substance: INDOMETHACIN
  12. PREDNISONE. [Concomitant]
     Active Substance: PREDNISONE
  13. LYRICA [Concomitant]
     Active Substance: PREGABALIN
  14. MIRALAX [Concomitant]
     Active Substance: POLYETHYLENE GLYCOL 3350
  15. NALOXEGOL [Concomitant]
     Active Substance: NALOXEGOL

REACTIONS (3)
  - Escherichia urinary tract infection [Unknown]
  - Urinary retention [Unknown]
  - Pyrexia [Unknown]

NARRATIVE: CASE EVENT DATE: 20180805
